FAERS Safety Report 15105406 (Version 1)
Quarter: 2018Q3

REPORT INFORMATION
  Report Type: Report from Study
  Country: FR (occurrence: FR)
  Receive Date: 20180704
  Receipt Date: 20180704
  Transmission Date: 20181010
  Serious: Yes (Other)
  Sender: FDA-Public Use
  Company Number: FR-TEVA-2018-FR-919210

PATIENT
  Age: 13 Year
  Sex: Female

DRUGS (10)
  1. METHOTREXATE. [Concomitant]
     Active Substance: METHOTREXATE
     Indication: OSTEOSARCOMA
     Dosage: 4?HOUR INFUSION OF 12 G/M2/DAY ONCE A WEEK (WEEKS 1, 2, 3, 7, 8, 12, 13)
     Route: 050
  2. VITAMIN D [Concomitant]
     Active Substance: CHOLECALCIFEROL
     Indication: PRODUCT USED FOR UNKNOWN INDICATION
     Route: 065
  3. ETOPOSIDE. [Concomitant]
     Active Substance: ETOPOSIDE
     Indication: OSTEOSARCOMA
     Dosage: 75 MG/M2/DAY FROM DAY 1 TO DAY 4 (WEEKS 4 AND 9) IN A 13?WEEK CHEMOTHERAPY; ADMINISTERED ON DAY +22
     Route: 065
  4. UROMITEXAN [Concomitant]
     Active Substance: MESNA
     Indication: ADJUVANT THERAPY
     Dosage: 3.6 G/M2/DAY FROM DAY 1 TO DAY 4 (WEEKS 4 AND 9) IN A 13 WEEK CHEMOTHERAPY; ADMINISTERED ON DAY +22
     Route: 065
  5. CALCIUM [Concomitant]
     Active Substance: CALCIUM
     Indication: PRODUCT USED FOR UNKNOWN INDICATION
     Route: 065
  6. TRAMADOL. [Interacting]
     Active Substance: TRAMADOL
     Indication: PRODUCT USED FOR UNKNOWN INDICATION
     Route: 065
  7. ONDANSETRON [Suspect]
     Active Substance: ONDANSETRON
     Indication: PROPHYLAXIS OF NAUSEA AND VOMITING
     Route: 065
  8. ACETAMINOPHEN. [Concomitant]
     Active Substance: ACETAMINOPHEN
     Indication: PRODUCT USED FOR UNKNOWN INDICATION
     Route: 065
  9. IFOSFAMIDE. [Interacting]
     Active Substance: IFOSFAMIDE
     Indication: OSTEOSARCOMA
     Dosage: 3?HOUR INFUSION?3G/M2 DAILY FROM DAY 1 TO DAY 4 (WEEKS 4 AND 9) IN A 13?WEEK CHEMOTHERAPY;ON DAY +22
     Route: 050
  10. PHOSPHORUS [Concomitant]
     Active Substance: PHOSPHORUS
     Indication: PRODUCT USED FOR UNKNOWN INDICATION
     Route: 065

REACTIONS (2)
  - Encephalopathy [Recovered/Resolved]
  - Drug interaction [Recovered/Resolved]
